FAERS Safety Report 8153902 (Version 2)
Quarter: 2014Q1

REPORT INFORMATION
  Report Type: Report from Study
  Country: DZ (occurrence: DZ)
  Receive Date: 20110923
  Receipt Date: 20140108
  Transmission Date: 20141002
  Serious: Yes (Death, Other)
  Sender: FDA-Public Use
  Company Number: DZ-ROCHE-803887

PATIENT
  Age: 40 Year
  Sex: Female

DRUGS (12)
  1. TRASTUZUMAB [Suspect]
     Indication: BREAST CANCER
     Dosage: DOSE: NR. FORM : INFUSION. CHARGE DOSE
     Route: 042
     Dates: start: 20101010, end: 20110517
  2. TRASTUZUMAB [Suspect]
     Dosage: DOSE: NR. FORM : INFUSION., MAINTENANCE DOSE
     Route: 042
     Dates: start: 20101010, end: 20110517
  3. CAPECITABINE [Suspect]
     Indication: BREAST CANCER
     Route: 065
  4. LAPATINIB [Suspect]
     Indication: BREAST CANCER
     Dosage: FREQUENCY: PER CURE.
     Route: 048
     Dates: start: 20101010, end: 20110517
  5. ZOLEDRONIC ACID [Suspect]
     Indication: BREAST CANCER
     Dosage: FREQUENCY: PER CURE.  FORM : INFUSION.
     Route: 042
     Dates: start: 20101010, end: 20110517
  6. 5-FU [Suspect]
     Indication: BREAST CANCER
     Route: 065
  7. CYCLOPHOSPHAMIDE [Suspect]
     Indication: BREAST CANCER
     Route: 065
  8. TAXOTERE [Suspect]
     Indication: BREAST CANCER
     Route: 065
  9. NAVELBINE [Suspect]
     Indication: BREAST CANCER
     Route: 065
  10. SOLU-MEDROL [Concomitant]
  11. RANITIDINE [Concomitant]
  12. ZOPHREN [Concomitant]

REACTIONS (3)
  - Disease progression [Fatal]
  - Respiratory distress [Fatal]
  - Ejection fraction decreased [Unknown]
